FAERS Safety Report 6029085-6 (Version None)
Quarter: 2008Q4

REPORT INFORMATION
  Report Type: 
  Country: None (occurrence: None)
  Receive Date: 20081231
  Receipt Date: 20081216
  Transmission Date: 20090506
  Serious: Yes (Hospitalization)
  Sender: FDA-Public Use
  Company Number: 2008AL012532

PATIENT
  Age: 83 Year
  Sex: Male

DRUGS (7)
  1. DIPYRIDAMOLE [Suspect]
     Indication: ISCHAEMIC STROKE
     Dosage: 200 MG; BID; PO
     Route: 048
     Dates: start: 20081028, end: 20081105
  2. ACETYLSALICYLIC ACID [Concomitant]
  3. AMLODIPINE [Concomitant]
  4. BISOPROLOL FUMARATE [Concomitant]
  5. BENDROFLUMETHIAZIDE [Concomitant]
  6. PANTOPRAZOLE SODIUM [Concomitant]
  7. OMEPRAZOLE [Concomitant]

REACTIONS (1)
  - GASTROINTESTINAL ULCER HAEMORRHAGE [None]
